FAERS Safety Report 9631246 (Version 1)
Quarter: 2013Q4

REPORT INFORMATION
  Report Type: Spontaneous
  Country: ES (occurrence: None)
  Receive Date: 20131015
  Receipt Date: 20131015
  Transmission Date: 20140711
  Serious: Yes (Other)
  Sender: FDA-Public Use
  Company Number: 2013P1019920

PATIENT
  Age: 34 Year
  Sex: Female

DRUGS (1)
  1. CHLOROQUINE [Suspect]
     Indication: SYSTEMIC LUPUS ERYTHEMATOSUS
     Route: 048

REACTIONS (3)
  - Retinal pigment epitheliopathy [None]
  - Maculopathy [None]
  - Toxicity to various agents [None]
